FAERS Safety Report 21491881 (Version 1)
Quarter: 2022Q4

REPORT INFORMATION
  Report Type: Spontaneous
  Country: FR (occurrence: None)
  Receive Date: 20221021
  Receipt Date: 20221021
  Transmission Date: 20230112
  Serious: Yes (Other)
  Sender: FDA-Public Use
  Company Number: 2022A349792

PATIENT
  Age: 80 Year
  Sex: Female

DRUGS (1)
  1. DAPAGLIFLOZIN [Suspect]
     Active Substance: DAPAGLIFLOZIN
     Route: 048
     Dates: start: 20220214, end: 20220422

REACTIONS (1)
  - Amaurosis [Recovered/Resolved]

NARRATIVE: CASE EVENT DATE: 20220214
